FAERS Safety Report 12351536 (Version 1)
Quarter: 2016Q2

REPORT INFORMATION
  Report Type: Report from Study
  Country: BR (occurrence: BR)
  Receive Date: 20160510
  Receipt Date: 20160510
  Transmission Date: 20160815
  Serious: Yes (Other)
  Sender: FDA-Public Use
  Company Number: PHHY2016BR062410

PATIENT
  Age: 60 Year
  Sex: Male

DRUGS (2)
  1. ALENIA                             /01538101/ [Suspect]
     Active Substance: BUDESONIDE\FORMOTEROL FUMARATE
     Indication: LUNG DISORDER
     Dosage: UNK UNK, BID
     Route: 055
     Dates: start: 2013
  2. FORASEQ [Suspect]
     Active Substance: BUDESONIDE\FORMOTEROL FUMARATE
     Indication: LUNG DISORDER
     Dosage: UNK, BID
     Route: 055
     Dates: start: 2009, end: 2011

REACTIONS (6)
  - Arthralgia [Not Recovered/Not Resolved]
  - Flavivirus infection [Recovering/Resolving]
  - Pain in extremity [Unknown]
  - Product use issue [Unknown]
  - Gait disturbance [Unknown]
  - Pain [Unknown]

NARRATIVE: CASE EVENT DATE: 20160429
